FAERS Safety Report 5710400-5 (Version None)
Quarter: 2008Q2

REPORT INFORMATION
  Report Type: 
  Country: None (occurrence: None)
  Receive Date: 20080418
  Receipt Date: 20080317
  Transmission Date: 20081010
  Serious: Yes (Life-Threatening, Hospitalization, Disabling, Other)
  Sender: FDA-Public Use
  Company Number: US-MERCK-0410USA01811

PATIENT
  Age: 47 Year
  Sex: Female
  Weight: 45 kg

DRUGS (7)
  1. SINGULAIR [Suspect]
     Indication: ASTHMA
     Route: 048
     Dates: start: 20030101, end: 20050101
  2. SINGULAIR [Suspect]
     Route: 048
     Dates: start: 20041021
  3. SINGULAIR [Suspect]
     Route: 048
     Dates: end: 20080301
  4. SINGULAIR [Suspect]
     Indication: CHRONIC OBSTRUCTIVE PULMONARY DISEASE
     Route: 048
     Dates: start: 20030101, end: 20050101
  5. SINGULAIR [Suspect]
     Route: 048
     Dates: start: 20041021
  6. SINGULAIR [Suspect]
     Route: 048
     Dates: end: 20080301
  7. VALIUM [Concomitant]
     Route: 065

REACTIONS (13)
  - ABDOMINAL DISCOMFORT [None]
  - ABDOMINAL PAIN UPPER [None]
  - ADVERSE EVENT [None]
  - BIPOLAR DISORDER [None]
  - CEREBROVASCULAR ACCIDENT [None]
  - DIARRHOEA [None]
  - DRUG ADMINISTRATION ERROR [None]
  - HAEMATOCHEZIA [None]
  - HYPOAESTHESIA [None]
  - NAUSEA [None]
  - SMALL INTESTINAL PERFORATION [None]
  - SUICIDAL IDEATION [None]
  - THROAT TIGHTNESS [None]
